FAERS Safety Report 4265935-1 (Version None)
Quarter: 2004Q1

REPORT INFORMATION
  Report Type: 
  Country: None (occurrence: None)
  Receive Date: 20040106
  Receipt Date: 20031222
  Transmission Date: 20041129
  Serious: Yes (Hospitalization)
  Sender: FDA-Public Use
  Company Number: 2003-DE-06448GD

PATIENT
  Age: 67 Year
  Sex: Female

DRUGS (2)
  1. LITHIUM CARBONATE [Suspect]
     Dosage: 600 MG
  2. ROFECOXIB [Suspect]
     Dosage: 40 MG

REACTIONS (7)
  - BLOOD CALCIUM INCREASED [None]
  - BLOOD LACTIC ACID [None]
  - DRUG INTERACTION [None]
  - DYSARTHRIA [None]
  - HEMIPARESIS [None]
  - RENAL FAILURE [None]
  - RENAL NEOPLASM [None]
